FAERS Safety Report 7208110-0 (Version None)
Quarter: 2011Q1

REPORT INFORMATION
  Report Type: 
  Country: None (occurrence: None)
  Receive Date: 20110104
  Receipt Date: 20101227
  Transmission Date: 20110831
  Serious: Yes (Other)
  Sender: FDA-Public Use
  Company Number: BR-SANOFI-AVENTIS-2010SA068903

PATIENT
  Age: 50 Year
  Sex: Female
  Weight: 59 kg

DRUGS (19)
  1. LANTUS [Suspect]
     Indication: TYPE 2 DIABETES MELLITUS
     Route: 058
     Dates: start: 20050101, end: 20060101
  2. VITAMIN D [Concomitant]
     Route: 048
  3. PREDNISOLONE [Concomitant]
     Route: 031
  4. CALCIFEROL [Concomitant]
  5. PREDNISONE [Concomitant]
     Route: 048
  6. RIVOTRIL [Concomitant]
     Route: 048
  7. NOVOLIN 70/30 [Concomitant]
     Indication: TYPE 2 DIABETES MELLITUS
  8. MAGNESIUM CARBONATE [Concomitant]
     Route: 048
  9. SYNTHROID [Concomitant]
     Indication: HYPOTHYROIDISM
     Route: 048
  10. PANTOPRAZOLE [Concomitant]
     Indication: GASTRIC DISORDER
     Route: 048
  11. SOLOSTAR [Suspect]
  12. CYCLOSPORINE [Concomitant]
     Route: 048
  13. ADALAT [Concomitant]
     Indication: BLOOD PRESSURE
     Route: 048
  14. PAMELOR [Concomitant]
     Indication: ANTIDEPRESSANT THERAPY
     Route: 048
  15. POLYACRYLIC ACID/SORBITOL [Concomitant]
     Route: 031
  16. LANTUS [Suspect]
     Route: 058
     Dates: start: 20090101
  17. BACTRIM [Concomitant]
     Indication: PROPHYLAXIS
     Route: 048
  18. CALCIUM CARBONATE [Concomitant]
     Route: 048
  19. ITRACONAZOLE [Concomitant]
     Indication: ANTIFUNGAL TREATMENT

REACTIONS (9)
  - OSTEONECROSIS [None]
  - VISION BLURRED [None]
  - HYPERHIDROSIS [None]
  - STOMATITIS [None]
  - HYPOGLYCAEMIA [None]
  - DRY MOUTH [None]
  - DIZZINESS [None]
  - HYPERGLYCAEMIA [None]
  - ORAL PAIN [None]
